FAERS Safety Report 6884079-3 (Version None)
Quarter: 2010Q3

REPORT INFORMATION
  Report Type: 
  Country: None (occurrence: None)
  Receive Date: 20100727
  Receipt Date: 20100713
  Transmission Date: 20110219
  Serious: Yes (Hospitalization)
  Sender: FDA-Public Use
  Company Number: 7007496

PATIENT
  Age: 51 Year
  Sex: Female

DRUGS (1)
  1. REBIF [Suspect]
     Indication: MULTIPLE SCLEROSIS
     Dosage: 22 MCG, 3 IN 1 WK; SUBCUTANEOUS
     Route: 058
     Dates: end: 20100601

REACTIONS (4)
  - DEPRESSION [None]
  - INFLUENZA LIKE ILLNESS [None]
  - NAUSEA [None]
  - SUICIDAL IDEATION [None]
